FAERS Safety Report 22061770 (Version 1)
Quarter: 2023Q1

REPORT INFORMATION
  Report Type: Report from Study
  Country: DE (occurrence: DE)
  Receive Date: 20230304
  Receipt Date: 20230304
  Transmission Date: 20230418
  Serious: Yes (Hospitalization)
  Sender: FDA-Public Use
  Company Number: DE-ABBVIE-4253691

PATIENT
  Age: 34 Year
  Sex: Female
  Weight: 89 kg

DRUGS (1)
  1. SKYRIZI [Suspect]
     Active Substance: RISANKIZUMAB-RZAA
     Indication: Psoriasis
     Route: 058
     Dates: start: 20210916, end: 20220331

REACTIONS (2)
  - Allergy to venom [Recovered/Resolved]
  - Allergy to venom [Not Recovered/Not Resolved]

NARRATIVE: CASE EVENT DATE: 20220101
